FAERS Safety Report 5705288 (Version 4)
Quarter: 2013Q1

REPORT INFORMATION
  Report Type: Spontaneous
  Country: BE (occurrence: BE)
  Receive Date: 20041220
  Receipt Date: 20130103
  Transmission Date: 20140127
  Serious: Yes (Disabling, Other)
  Sender: FDA-Public Use
  Company Number: BE-ASTRAZENECA-2004AC00978

PATIENT
  Sex: Female
  Weight: 66 kg

DRUGS (10)
  1. MARCAINE [Suspect]
     Indication: ANAESTHESIA
     Dosage: 0.4 PERCENT (2.8 ML OF A MIX OF MARCAINE WITH SUFENTA, IN TOTAL 10.4 MG)
     Route: 037
     Dates: start: 20041110
  2. SUFENTA [Suspect]
     Indication: ANAESTHESIA
     Dosage: ONE MCG PER ML (2.8 ML OF A MIX OF MARCAINE WITH SUFENTA, IN TOTAL 10.4 MG)
     Route: 065
     Dates: start: 20041110
  3. PRIMPERAN [Concomitant]
  4. DIPIDOLOR [Concomitant]
     Indication: PAIN
     Route: 030
  5. TARADYL [Concomitant]
     Route: 042
  6. PERFUSALGAN [Concomitant]
  7. LITICAN [Concomitant]
  8. NOVABAN [Concomitant]
  9. FRAXIPARIN [Concomitant]
  10. LYRICA [Concomitant]

REACTIONS (3)
  - Cauda equina syndrome [Not Recovered/Not Resolved]
  - Facet joint syndrome [Recovered/Resolved with Sequelae]
  - Arachnoiditis [Recovered/Resolved with Sequelae]
